FAERS Safety Report 25069815 (Version 2)
Quarter: 2025Q1

REPORT INFORMATION
  Report Type: Spontaneous
  Country: CN (occurrence: CN)
  Receive Date: 20250312
  Receipt Date: 20250317
  Transmission Date: 20250408
  Serious: No
  Sender: NOVARTIS
  Company Number: CN-002147023-NVSC2025CN040812

PATIENT
  Age: 70 Year
  Sex: Female
  Weight: 65 kg

DRUGS (1)
  1. CARBAMAZEPINE [Suspect]
     Active Substance: CARBAMAZEPINE
     Indication: Cerebral infarction
     Dosage: 0.200 G, QD
     Route: 048
     Dates: start: 20250214, end: 20250216

REACTIONS (5)
  - Vomiting [Recovering/Resolving]
  - Dysarthria [Recovering/Resolving]
  - Limb discomfort [Recovering/Resolving]
  - Dizziness [Recovering/Resolving]
  - Nausea [Recovering/Resolving]

NARRATIVE: CASE EVENT DATE: 20250216
